FAERS Safety Report 6067014-X (Version None)
Quarter: 2009Q1

REPORT INFORMATION
  Report Type: 
  Country: None (occurrence: None)
  Receive Date: 20090205
  Receipt Date: 20090125
  Transmission Date: 20090719
  Serious: Yes (Other)
  Sender: FDA-Public Use
  Company Number: GB-ROCHE-610649

PATIENT
  Sex: Female
  Weight: 95.3 kg

DRUGS (1)
  1. ORLISTAT [Suspect]
     Indication: OBESITY
     Route: 048
     Dates: start: 20080829

REACTIONS (3)
  - COUGH [None]
  - LABYRINTHITIS [None]
  - NASOPHARYNGITIS [None]
